FAERS Safety Report 4466956-6 (Version None)
Quarter: 2004Q4

REPORT INFORMATION
  Report Type: 
  Country: None (occurrence: None)
  Receive Date: 20041006
  Receipt Date: 20040929
  Transmission Date: 20050328
  Serious: Yes (Hospitalization)
  Sender: FDA-Public Use
  Company Number: 200413624FR

PATIENT
  Age: 62 Year
  Sex: Male

DRUGS (3)
  1. LASIX [Suspect]
     Route: 048
     Dates: start: 20031213, end: 20031212
  2. ESIDRIX [Suspect]
     Route: 048
     Dates: end: 20031212
  3. DIGITALINE NATIVELLE [Concomitant]
     Route: 048
     Dates: end: 20031212

REACTIONS (6)
  - BLOOD PRESSURE DECREASED [None]
  - CARDIOACTIVE DRUG LEVEL INCREASED [None]
  - DEHYDRATION [None]
  - LOSS OF CONSCIOUSNESS [None]
  - OVERDOSE [None]
  - RENAL FAILURE ACUTE [None]
